FAERS Safety Report 5869545-1 (Version None)
Quarter: 2008Q3

REPORT INFORMATION
  Report Type: 
  Country: None (occurrence: None)
  Receive Date: 20080904
  Receipt Date: 20080829
  Transmission Date: 20090109
  Serious: Yes (Other)
  Sender: FDA-Public Use
  Company Number: US-RANBAXY-2008US-16924

PATIENT

DRUGS (1)
  1. ISOTRETINOIN [Suspect]
     Indication: ACNE
     Dosage: 30 MG, QD
     Route: 048
     Dates: start: 20080701, end: 20080820

REACTIONS (2)
  - OLIGOMENORRHOEA [None]
  - OVARIAN CYST [None]
